FAERS Safety Report 9338282 (Version 1)
Quarter: 2013Q2

REPORT INFORMATION
  Report Type: Spontaneous
  Country: US (occurrence: None)
  Receive Date: 20130605
  Receipt Date: 20130605
  Transmission Date: 20140414
  Serious: No
  Sender: FDA-Public Use
  Company Number: None

PATIENT
  Age: 11 Year
  Sex: Male
  Weight: 28.12 kg

DRUGS (1)
  1. CONCIERTA [Suspect]
     Dosage: 1 X DAY
     Route: 048
     Dates: start: 20130515, end: 20130604

REACTIONS (3)
  - Violence-related symptom [None]
  - Product substitution issue [None]
  - Product quality issue [None]
